FAERS Safety Report 6065383-8 (Version None)
Quarter: 2009Q1

REPORT INFORMATION
  Report Type: 
  Country: None (occurrence: None)
  Receive Date: 20090204
  Receipt Date: 20090130
  Transmission Date: 20090719
  Serious: Yes (Hospitalization)
  Sender: FDA-Public Use
  Company Number: IT-GENENTECH-276421

PATIENT
  Sex: Male

DRUGS (4)
  1. RAPTIVA [Suspect]
     Indication: PSORIASIS
     Dosage: 1 MG/KG, 1/WEEK
     Route: 058
     Dates: start: 20080915, end: 20081222
  2. TEGRETOL [Concomitant]
     Indication: DRUG USE FOR UNKNOWN INDICATION
     Dosage: 200 MG, UNK
  3. DEPAKENE [Concomitant]
     Indication: DRUG USE FOR UNKNOWN INDICATION
     Dosage: 200 MG, UNK
  4. BIPERIDEN HYDROCHLORIDE TAB [Concomitant]
     Indication: DRUG USE FOR UNKNOWN INDICATION
     Dosage: UNK

REACTIONS (3)
  - PLANTAR FASCIITIS [None]
  - PSORIATIC ARTHROPATHY [None]
  - TENOSYNOVITIS [None]
